FAERS Safety Report 8531467-5 (Version None)
Quarter: 2012Q3

REPORT INFORMATION
  Report Type: 
  Country: None (occurrence: None)
  Receive Date: 20120723
  Receipt Date: 20120625
  Transmission Date: 20120928
  Serious: No
  Sender: FDA-Public Use
  Company Number: US-BAYER-2011-110926

PATIENT
  Age: 62 Year
  Sex: Male

DRUGS (3)
  1. LEVITRA [Suspect]
     Dosage: UNK
     Route: 048
  2. LEVITRA [Suspect]
     Indication: ERECTILE DYSFUNCTION
     Dosage: 10 MG, UNK
     Route: 048
  3. SIMVASTATIN [Concomitant]

REACTIONS (5)
  - ERECTILE DYSFUNCTION [None]
  - FLUSHING [None]
  - UNEVALUABLE EVENT [None]
  - FEELING HOT [None]
  - HEADACHE [None]
